FAERS Safety Report 23679722 (Version 1)
Quarter: 2024Q1

REPORT INFORMATION
  Report Type: Spontaneous
  Country: CA (occurrence: CA)
  Receive Date: 20240327
  Receipt Date: 20240327
  Transmission Date: 20240410
  Serious: Yes (Hospitalization, Other)
  Sender: FDA-Public Use
  Company Number: CA-SUN PHARMACEUTICAL INDUSTRIES LTD-2024R1-438168

PATIENT
  Age: 17 Year
  Sex: Female

DRUGS (6)
  1. DULOXETINE [Suspect]
     Active Substance: DULOXETINE
     Indication: Pain
     Dosage: UNK
     Route: 065
  2. PREGABALIN [Suspect]
     Active Substance: PREGABALIN
     Indication: Pain
     Dosage: UNK
     Route: 065
  3. LIDOCAINE [Suspect]
     Active Substance: LIDOCAINE
     Indication: Pain
     Dosage: UNK
     Route: 061
  4. NAPROXEN [Suspect]
     Active Substance: NAPROXEN
     Indication: Pain
     Route: 065
  5. KETAMINE [Suspect]
     Active Substance: KETAMINE
     Indication: Pain
     Dosage: UNK
     Route: 061
  6. VOLTAREN [Suspect]
     Active Substance: DICLOFENAC SODIUM
     Indication: Pain
     Dosage: UNK
     Route: 061

REACTIONS (2)
  - Therapy non-responder [Unknown]
  - Condition aggravated [Unknown]
